FAERS Safety Report 4772740-6 (Version None)
Quarter: 2005Q3

REPORT INFORMATION
  Report Type: 
  Country: None (occurrence: None)
  Receive Date: 20050919
  Receipt Date: 20050909
  Transmission Date: 20060218
  Serious: Yes (Hospitalization)
  Sender: FDA-Public Use
  Company Number: JP-ROCHE-417413

PATIENT
  Age: 70 Year
  Sex: Male

DRUGS (2)
  1. PEGASYS [Suspect]
     Indication: HEPATITIS C
     Route: 058
     Dates: start: 20050202, end: 20050330
  2. PEGASYS [Suspect]
     Route: 058
     Dates: start: 20050406, end: 20050810

REACTIONS (1)
  - CEREBRAL INFARCTION [None]
